FAERS Safety Report 15609833 (Version 5)
Quarter: 2018Q4

REPORT INFORMATION
  Report Type: Spontaneous
  Country: CA (occurrence: CA)
  Receive Date: 20181113
  Receipt Date: 20181227
  Transmission Date: 20190205
  Serious: Yes (Hospitalization, Other)
  Sender: FDA-Public Use
  Company Number: CA-CELLTRION INC.-2018CA023298

PATIENT

DRUGS (2)
  1. INFLECTRA [Suspect]
     Active Substance: INFLIXIMAB-DYYB
     Indication: RHEUMATOID ARTHRITIS
     Dosage: 264 MG/KG, (Q 0, 2, 6 WEEKS THEN EVERY 8 WEEKS)
     Route: 042
     Dates: start: 20181001, end: 201810
  2. INFLECTRA [Suspect]
     Active Substance: INFLIXIMAB-DYYB
     Dosage: 264 MG/KG, (Q 0, 2, 6 WEEKS THEN EVERY 8 WEEKS)
     Route: 042
     Dates: start: 20181029, end: 20181029

REACTIONS (12)
  - Nausea [Recovered/Resolved]
  - Peripheral swelling [Unknown]
  - Vomiting [Unknown]
  - Hypertension [Unknown]
  - Gout [Unknown]
  - Nausea [Unknown]
  - Infusion site extravasation [Unknown]
  - Proctalgia [Unknown]
  - Dizziness [Unknown]
  - Intestinal mass [Unknown]
  - Erythema [Unknown]
  - Pain in extremity [Unknown]

NARRATIVE: CASE EVENT DATE: 20181001
